FAERS Safety Report 5058522-9 (Version None)
Quarter: 2006Q2

REPORT INFORMATION
  Report Type: 
  Country: None (occurrence: None)
  Receive Date: 20060627
  Receipt Date: 20050512
  Transmission Date: 20061013
  Serious: Yes (Hospitalization)
  Sender: FDA-Public Use
  Company Number: 404798

PATIENT
  Age: 59 Year
  Sex: Female
  Weight: 47.2 kg

DRUGS (2)
  1. XELODA [Suspect]
     Dosage: 3000 MG DAILY ORAL
     Route: 048
     Dates: start: 20050401, end: 20050414
  2. OXALIPLATIN [Suspect]
     Dosage: INTRAVENOUS
     Route: 042
     Dates: start: 20050330, end: 20050330

REACTIONS (17)
  - ABDOMINAL DISTENSION [None]
  - ABDOMINAL PAIN UPPER [None]
  - ABDOMINAL TENDERNESS [None]
  - ANOREXIA [None]
  - ASTHENIA [None]
  - DEHYDRATION [None]
  - DIARRHOEA [None]
  - EYE PAIN [None]
  - HEADACHE [None]
  - MALNUTRITION [None]
  - NAUSEA [None]
  - SKIN EXFOLIATION [None]
  - VEIN DISORDER [None]
  - VISION BLURRED [None]
  - VISUAL DISTURBANCE [None]
  - VOMITING [None]
  - WEIGHT DECREASED [None]
